FAERS Safety Report 13594085 (Version 2)
Quarter: 2017Q3

REPORT INFORMATION
  Report Type: Spontaneous
  Country: CH (occurrence: CH)
  Receive Date: 20170530
  Receipt Date: 20170718
  Transmission Date: 20171127
  Serious: Yes (Other)
  Sender: FDA-Public Use
  Company Number: CH-BAYER-2017-098432

PATIENT
  Age: 65 Year
  Sex: Male

DRUGS (7)
  1. XOFIGO [Suspect]
     Active Substance: RADIUM RA-223 DICHLORIDE
     Indication: HORMONE-REFRACTORY PROSTATE CANCER
     Dosage: 4.400 MBQ, ONCE
     Dates: start: 20170224
  2. XOFIGO [Suspect]
     Active Substance: RADIUM RA-223 DICHLORIDE
     Indication: HORMONE-REFRACTORY PROSTATE CANCER
     Dosage: 4.400 MBQ, ONCE
     Dates: start: 20170324
  3. XOFIGO [Suspect]
     Active Substance: RADIUM RA-223 DICHLORIDE
     Indication: HORMONE-REFRACTORY PROSTATE CANCER
     Dosage: 4.3 MBQ, ONCE
     Dates: start: 20161230
  4. XOFIGO [Suspect]
     Active Substance: RADIUM RA-223 DICHLORIDE
     Indication: METASTASES TO BONE
     Dosage: 4.200 MBQ, ONCE
     Dates: start: 20170127
  5. XOFIGO [Suspect]
     Active Substance: RADIUM RA-223 DICHLORIDE
     Indication: HORMONE-REFRACTORY PROSTATE CANCER
     Dosage: 4.500 MBQ, ONCE
     Dates: start: 20170519
  6. XOFIGO [Suspect]
     Active Substance: RADIUM RA-223 DICHLORIDE
     Indication: HORMONE-REFRACTORY PROSTATE CANCER
     Dosage: 4.400 MBQ, ONCE
     Dates: start: 20170421
  7. BICALUTAMIDE. [Concomitant]
     Active Substance: BICALUTAMIDE
     Dosage: 50 MG, UNK
     Dates: start: 20150320

REACTIONS (1)
  - Pathological fracture [None]
